FAERS Safety Report 11030145 (Version 1)
Quarter: 2015Q2

REPORT INFORMATION
  Report Type: Spontaneous
  Country: US (occurrence: None)
  Receive Date: 20150414
  Receipt Date: 20150414
  Transmission Date: 20150821
  Serious: No
  Sender: FDA-Public Use
  Company Number: None

PATIENT
  Age: 69 Year
  Sex: Female

DRUGS (1)
  1. COPAXONE [Suspect]
     Active Substance: GLATIRAMER ACETATE
     Indication: MULTIPLE SCLEROSIS
     Dosage: 40 MG, 3X WEEKLY, SQ
     Route: 058
     Dates: start: 20150402, end: 20150411

REACTIONS (5)
  - Speech disorder [None]
  - Chills [None]
  - Feeling cold [None]
  - Tremor [None]
  - Head discomfort [None]

NARRATIVE: CASE EVENT DATE: 20150411
